FAERS Safety Report 10736134 (Version 1)
Quarter: 2015Q1

REPORT INFORMATION
  Report Type: Spontaneous
  Country: US (occurrence: None)
  Receive Date: 20150121
  Receipt Date: 20150121
  Transmission Date: 20150721
  Serious: Yes (Other)
  Sender: FDA-Public Use
  Company Number: 2015010143

PATIENT
  Sex: Male

DRUGS (1)
  1. FELBAMATE. [Suspect]
     Active Substance: FELBAMATE

REACTIONS (2)
  - Seizure [None]
  - Brain neoplasm malignant [None]
